FAERS Safety Report 10080724 (Version 3)
Quarter: 2016Q1

REPORT INFORMATION
  Report Type: Report from Study
  Country: US (occurrence: US)
  Receive Date: 20140416
  Receipt Date: 20160304
  Transmission Date: 20160525
  Serious: Yes (Hospitalization)
  Sender: FDA-Public Use
  Company Number: US-ROCHE-1301856

PATIENT
  Age: 61 Year
  Sex: Male

DRUGS (5)
  1. ASPIRIN. [Concomitant]
     Active Substance: ASPIRIN
     Route: 065
  2. RIBASPHERE RIBAPAK [Suspect]
     Active Substance: RIBAVIRIN
     Indication: CHRONIC HEPATITIS C
     Dosage: DIVIDED DOSES
     Route: 048
  3. ZOCOR [Concomitant]
     Active Substance: SIMVASTATIN
     Route: 065
  4. PEGASYS [Suspect]
     Active Substance: PEGINTERFERON ALFA-2A
     Indication: CHRONIC HEPATITIS C
     Route: 058
     Dates: start: 20131011
  5. LISINOPRIL. [Concomitant]
     Active Substance: LISINOPRIL
     Route: 065

REACTIONS (18)
  - Red blood cell count decreased [Unknown]
  - Bone marrow failure [Unknown]
  - Rhinorrhoea [Unknown]
  - Sneezing [Unknown]
  - Rash [Unknown]
  - Injection site bruising [Not Recovered/Not Resolved]
  - Immune system disorder [Unknown]
  - Platelet count decreased [Unknown]
  - Rash macular [Unknown]
  - Influenza like illness [Unknown]
  - Rash pruritic [Unknown]
  - Eye contusion [Unknown]
  - Blood blister [Unknown]
  - White blood cell count decreased [Unknown]
  - Haemorrhage [Unknown]
  - Cough [Unknown]
  - Pruritus [Unknown]
  - Immunosuppression [Unknown]

NARRATIVE: CASE EVENT DATE: 20140218
